FAERS Safety Report 6200357-5 (Version None)
Quarter: 2009Q2

REPORT INFORMATION
  Report Type: 
  Country: None (occurrence: None)
  Receive Date: 20090522
  Receipt Date: 20090512
  Transmission Date: 20091009
  Serious: Yes (Other)
  Sender: FDA-Public Use
  Company Number: US-ROCHE-604660

PATIENT
  Age: 38 Year
  Sex: Female

DRUGS (6)
  1. NELFINAVIR [Suspect]
     Indication: DRUG USE FOR UNKNOWN INDICATION
     Route: 048
     Dates: start: 20080619, end: 20080731
  2. LAMIVUDINE AND ZIDOVUDINE [Suspect]
     Indication: DRUG USE FOR UNKNOWN INDICATION
     Dosage: STARTED AT WEEK 8 OF AMENORRHEA
     Route: 048
     Dates: end: 20080731
  3. RITONAVIR [Suspect]
     Indication: DRUG USE FOR UNKNOWN INDICATION
     Dosage: STARTED IN WEEK 8 OF AMENORRHEA
     Route: 048
     Dates: end: 20080619
  4. RITONAVIR [Suspect]
     Route: 048
     Dates: start: 20080731
  5. ZIDOVUDINE [Suspect]
     Indication: DRUG USE FOR UNKNOWN INDICATION
     Route: 048
     Dates: start: 20080731
  6. TENOFOVIR [Suspect]
     Indication: DRUG USE FOR UNKNOWN INDICATION
     Route: 048
     Dates: start: 20080731

REACTIONS (1)
  - INTRA-UTERINE DEATH [None]
